FAERS Safety Report 20475457 (Version 1)
Quarter: 2022Q1

REPORT INFORMATION
  Report Type: Spontaneous
  Country: US (occurrence: US)
  Receive Date: 20220215
  Receipt Date: 20220215
  Transmission Date: 20220423
  Serious: Yes (Other)
  Sender: FDA-Public Use
  Company Number: DEX 2022-0033(0)

PATIENT

DRUGS (11)
  1. DEXMEDETOMIDINE HYDROCHLORIDE [Suspect]
     Active Substance: DEXMEDETOMIDINE HYDROCHLORIDE
     Indication: Maintenance of anaesthesia
     Dosage: SLOW LOADING DOSE (1 UG/KG)
     Route: 065
  2. DEXMEDETOMIDINE HYDROCHLORIDE [Suspect]
     Active Substance: DEXMEDETOMIDINE HYDROCHLORIDE
     Dosage: CONT. INFUSION TITRATED FROM 1MCG/KG/HR TO AS HIGH AS 8MCG/KG/HR TO KEEP IMMOBILITY AND STABLE VITAL
     Route: 065
  3. SEVOFLURANE [Suspect]
     Active Substance: SEVOFLURANE
     Indication: Induction of anaesthesia
     Dosage: UP TO 3.5 MAC
     Route: 055
  4. NITRIC OXIDE [Suspect]
     Active Substance: NITRIC OXIDE
     Indication: Induction of anaesthesia
     Dosage: 0.75 MAC
     Route: 055
  5. ATROPINE [Suspect]
     Active Substance: ATROPINE
     Indication: Induction of anaesthesia
     Dosage: 20 MCG/KG, BUT NOT LESS THAN 0.1 MG
     Route: 042
  6. ROCURONIUM [Suspect]
     Active Substance: ROCURONIUM BROMIDE
     Indication: Induction of anaesthesia
     Dosage: REPEATED IN SMALLER DOSES AS NEEDED (1 MG/KG)
     Route: 042
  7. ACETAMINOPHEN [Suspect]
     Active Substance: ACETAMINOPHEN
     Indication: Induction of anaesthesia
     Dosage: 40 MG/KG
     Route: 054
  8. BUPIVACAINE [Suspect]
     Active Substance: BUPIVACAINE
     Indication: Induction of anaesthesia
     Dosage: STRENGTH 0.25%
     Route: 065
  9. EPINEPHRINE [Suspect]
     Active Substance: EPINEPHRINE
     Indication: Induction of anaesthesia
     Dosage: UNK
     Route: 065
  10. FENTANYL [Suspect]
     Active Substance: FENTANYL
     Indication: Maintenance of anaesthesia
     Dosage: (MAX DOSE) - BOLUS GIVEN BASED ON VITAL SIGNS AND CONDITION
     Route: 065
  11. REMIFENTANIL [Suspect]
     Active Substance: REMIFENTANIL
     Indication: Maintenance of anaesthesia
     Dosage: 0.2 UG/KG, 1 MIN
     Route: 065

REACTIONS (1)
  - Hypopnoea [Unknown]
